FAERS Safety Report 4864206-X (Version None)
Quarter: 2005Q4

REPORT INFORMATION
  Report Type: 
  Country: None (occurrence: None)
  Receive Date: 20051222
  Receipt Date: 20051214
  Transmission Date: 20060501
  Serious: Yes (Hospitalization)
  Sender: FDA-Public Use
  Company Number: US-AMGEN-US161355

PATIENT
  Age: 82 Year
  Sex: Male

DRUGS (1)
  1. ARANESP [Suspect]
     Indication: RENAL FAILURE CHRONIC

REACTIONS (12)
  - BLOOD POTASSIUM INCREASED [None]
  - BRADYCARDIA [None]
  - COLLAPSE OF LUNG [None]
  - DIALYSIS [None]
  - DISEASE RECURRENCE [None]
  - FLUID OVERLOAD [None]
  - HAEMOGLOBIN DECREASED [None]
  - HYPOTENSION [None]
  - PLEURAL EFFUSION [None]
  - PNEUMONIA [None]
  - RENAL TUBULAR NECROSIS [None]
  - SEPSIS [None]
